FAERS Safety Report 8513998-7 (Version None)
Quarter: 2012Q3

REPORT INFORMATION
  Report Type: 
  Country: None (occurrence: None)
  Receive Date: 20120717
  Receipt Date: 20120702
  Transmission Date: 20120928
  Serious: Yes (Hospitalization)
  Sender: FDA-Public Use
  Company Number: IL-009507513-1206USA05082

PATIENT

DRUGS (25)
  1. BLINDED POST TRIAL THERAPY [Suspect]
     Route: 048
     Dates: start: 20120618, end: 20120618
  2. BLINDED ONDANSETRON HCL [Suspect]
     Route: 048
     Dates: start: 20120619, end: 20120620
  3. PLACEBO [Suspect]
     Route: 048
     Dates: start: 20120619, end: 20120620
  4. BLINDED POST TRIAL THERAPY [Suspect]
     Route: 048
     Dates: start: 20120619, end: 20120620
  5. DEXACORT (DEXAMETHASONE SODIUM PHOSPHATE) [Concomitant]
     Indication: COOMBS POSITIVE HAEMOLYTIC ANAEMIA
     Dosage: 5 MG, QD
     Route: 048
     Dates: start: 20120605, end: 20120611
  6. BLINDED PRE TRIAL THERAPY [Suspect]
     Route: 048
     Dates: start: 20120618, end: 20120618
  7. CISPLATIN [Suspect]
     Indication: CHEMOTHERAPY
     Dosage: 46.2 MG/KG, QD
     Route: 042
     Dates: start: 20120618, end: 20120618
  8. CYTOXAN [Suspect]
     Indication: CHEMOTHERAPY
     Dosage: 172 MG, QD
     Route: 042
     Dates: start: 20120619, end: 20120620
  9. RESPRIM [Concomitant]
     Indication: ANTIFUNGAL PROPHYLAXIS
     Dosage: 7 ML, QD
     Route: 048
     Dates: start: 20120523
  10. DIAMOX [Concomitant]
     Indication: COOMBS POSITIVE HAEMOLYTIC ANAEMIA
     Dosage: 250 MG, BID
     Route: 048
     Dates: start: 20120605, end: 20120612
  11. DEXAMETHASONE [Suspect]
     Route: 048
     Dates: start: 20120619, end: 20120620
  12. VINCRISTINE SULFATE [Suspect]
     Indication: CHEMOTHERAPY
     Dosage: 0.66 MG, QD
     Route: 042
     Dates: start: 20120618, end: 20120618
  13. DEXAMETHASONE [Suspect]
     Route: 048
     Dates: start: 20120618, end: 20120618
  14. BLINDED ONDANSETRON HCL [Suspect]
     Route: 048
     Dates: start: 20120618, end: 20120618
  15. BLINDED PRE TRIAL THERAPY [Suspect]
     Route: 048
     Dates: start: 20120619, end: 20120620
  16. BLINDED APREPITANT [Suspect]
     Route: 048
     Dates: start: 20120619, end: 20120620
  17. PLACEBO [Suspect]
     Route: 048
     Dates: start: 20120618, end: 20120618
  18. BLINDED APREPITANT [Suspect]
     Route: 048
     Dates: start: 20120619, end: 20120620
  19. VINCRISTINE SULFATE [Suspect]
     Dosage: 0.6 MG, QD
     Route: 042
     Dates: start: 20120624, end: 20120624
  20. ETOPOSIDE [Suspect]
     Indication: CHEMOTHERAPY
     Dosage: 33 MG, QD
     Route: 042
     Dates: start: 20120618, end: 20120620
  21. ONDANSETRON [Suspect]
     Indication: PROPHYLAXIS OF NAUSEA AND VOMITING
     Route: 048
     Dates: start: 20120618, end: 20120622
  22. BLINDED APREPITANT [Suspect]
     Route: 048
     Dates: start: 20120618, end: 20120618
  23. VINCRISTINE SULFATE [Suspect]
     Dosage: 0.66 MG, QD
     Route: 042
     Dates: start: 20120701, end: 20120701
  24. MESNA [Concomitant]
     Indication: PROPHYLAXIS
     Dosage: 172 MG, TID
     Route: 042
     Dates: start: 20120619, end: 20120620
  25. BLINDED APREPITANT [Suspect]
     Route: 048
     Dates: start: 20120618, end: 20120618

REACTIONS (4)
  - PYREXIA [None]
  - HYPONATRAEMIA [None]
  - HYPOKALAEMIA [None]
  - FEBRILE NEUTROPENIA [None]
